FAERS Safety Report 25587660 (Version 1)
Quarter: 2025Q3

REPORT INFORMATION
  Report Type: Spontaneous
  Country: EU (occurrence: EU)
  Receive Date: 20250721
  Receipt Date: 20250721
  Transmission Date: 20251020
  Serious: Yes (Other)
  Sender: MYLAN
  Company Number: None

PATIENT
  Age: 73 Year
  Sex: Male
  Weight: 71 kg

DRUGS (60)
  1. ALLOPURINOL [Suspect]
     Active Substance: ALLOPURINOL
     Indication: Essential thrombocythaemia
     Dosage: 300 MILLIGRAM, QD
     Dates: start: 20230717, end: 20250318
  2. ALLOPURINOL [Suspect]
     Active Substance: ALLOPURINOL
     Dosage: 300 MILLIGRAM, QD
     Route: 048
     Dates: start: 20230717, end: 20250318
  3. ALLOPURINOL [Suspect]
     Active Substance: ALLOPURINOL
     Dosage: 300 MILLIGRAM, QD
     Route: 048
     Dates: start: 20230717, end: 20250318
  4. ALLOPURINOL [Suspect]
     Active Substance: ALLOPURINOL
     Dosage: 300 MILLIGRAM, QD
     Dates: start: 20230717, end: 20250318
  5. ACETAMINOPHEN [Suspect]
     Active Substance: ACETAMINOPHEN
     Indication: Pain
  6. ACETAMINOPHEN [Suspect]
     Active Substance: ACETAMINOPHEN
     Route: 048
  7. ACETAMINOPHEN [Suspect]
     Active Substance: ACETAMINOPHEN
     Route: 048
  8. ACETAMINOPHEN [Suspect]
     Active Substance: ACETAMINOPHEN
  9. PANTOPRAZOLE [Suspect]
     Active Substance: PANTOPRAZOLE
     Indication: Product used for unknown indication
     Dosage: 20 MILLIGRAM, QD
     Dates: start: 20240616
  10. PANTOPRAZOLE [Suspect]
     Active Substance: PANTOPRAZOLE
     Dosage: 20 MILLIGRAM, QD
     Route: 048
     Dates: start: 20240616
  11. PANTOPRAZOLE [Suspect]
     Active Substance: PANTOPRAZOLE
     Dosage: 20 MILLIGRAM, QD
     Route: 048
     Dates: start: 20240616
  12. PANTOPRAZOLE [Suspect]
     Active Substance: PANTOPRAZOLE
     Dosage: 20 MILLIGRAM, QD
     Dates: start: 20240616
  13. ATORVASTATIN [Suspect]
     Active Substance: ATORVASTATIN
     Indication: Prophylaxis
     Dosage: 80 MILLIGRAM, QD
     Dates: start: 202408
  14. ATORVASTATIN [Suspect]
     Active Substance: ATORVASTATIN
     Indication: Acute coronary syndrome
     Dosage: 80 MILLIGRAM, QD
     Route: 048
     Dates: start: 202408
  15. ATORVASTATIN [Suspect]
     Active Substance: ATORVASTATIN
     Dosage: 80 MILLIGRAM, QD
     Route: 048
     Dates: start: 202408
  16. ATORVASTATIN [Suspect]
     Active Substance: ATORVASTATIN
     Dosage: 80 MILLIGRAM, QD
     Dates: start: 202408
  17. HYDREA [Suspect]
     Active Substance: HYDROXYUREA
     Indication: Essential thrombocythaemia
     Dosage: 1000 MILLIGRAM, QD
     Dates: start: 20230717, end: 20250318
  18. HYDREA [Suspect]
     Active Substance: HYDROXYUREA
     Dosage: 1000 MILLIGRAM, QD
     Dates: start: 20230717, end: 20250318
  19. HYDREA [Suspect]
     Active Substance: HYDROXYUREA
     Dosage: 1000 MILLIGRAM, QD
     Route: 048
     Dates: start: 20230717, end: 20250318
  20. HYDREA [Suspect]
     Active Substance: HYDROXYUREA
     Dosage: 1000 MILLIGRAM, QD
     Route: 048
     Dates: start: 20230717, end: 20250318
  21. HYDREA [Suspect]
     Active Substance: HYDROXYUREA
     Dosage: 500 MILLIGRAM, QD
     Dates: start: 20250401
  22. HYDREA [Suspect]
     Active Substance: HYDROXYUREA
     Dosage: 500 MILLIGRAM, QD
     Dates: start: 20250401
  23. HYDREA [Suspect]
     Active Substance: HYDROXYUREA
     Dosage: 500 MILLIGRAM, QD
     Route: 048
     Dates: start: 20250401
  24. HYDREA [Suspect]
     Active Substance: HYDROXYUREA
     Dosage: 500 MILLIGRAM, QD
     Route: 048
     Dates: start: 20250401
  25. KARDEGIC [Concomitant]
     Active Substance: ASPIRIN DL-LYSINE
     Indication: Thrombosis prophylaxis
     Dosage: 75 MILLIGRAM, QD
  26. KARDEGIC [Concomitant]
     Active Substance: ASPIRIN DL-LYSINE
     Indication: Acute coronary syndrome
     Dosage: 75 MILLIGRAM, QD
     Route: 048
  27. KARDEGIC [Concomitant]
     Active Substance: ASPIRIN DL-LYSINE
     Dosage: 75 MILLIGRAM, QD
     Route: 048
  28. KARDEGIC [Concomitant]
     Active Substance: ASPIRIN DL-LYSINE
     Dosage: 75 MILLIGRAM, QD
  29. BISOPROLOL FUMARATE [Concomitant]
     Active Substance: BISOPROLOL FUMARATE
     Indication: Atrial fibrillation
     Dosage: 2.5 MILLIGRAM, QD
     Dates: end: 20250414
  30. BISOPROLOL FUMARATE [Concomitant]
     Active Substance: BISOPROLOL FUMARATE
     Dosage: 2.5 MILLIGRAM, QD
     Dates: end: 20250414
  31. BISOPROLOL FUMARATE [Concomitant]
     Active Substance: BISOPROLOL FUMARATE
     Dosage: 2.5 MILLIGRAM, QD
     Route: 048
     Dates: end: 20250414
  32. BISOPROLOL FUMARATE [Concomitant]
     Active Substance: BISOPROLOL FUMARATE
     Dosage: 2.5 MILLIGRAM, QD
     Route: 048
     Dates: end: 20250414
  33. BISOPROLOL FUMARATE [Concomitant]
     Active Substance: BISOPROLOL FUMARATE
     Dosage: 1.25 MILLIGRAM, QD
     Dates: start: 20250414
  34. BISOPROLOL FUMARATE [Concomitant]
     Active Substance: BISOPROLOL FUMARATE
     Dosage: 1.25 MILLIGRAM, QD
     Dates: start: 20250414
  35. BISOPROLOL FUMARATE [Concomitant]
     Active Substance: BISOPROLOL FUMARATE
     Dosage: 1.25 MILLIGRAM, QD
     Route: 048
     Dates: start: 20250414
  36. BISOPROLOL FUMARATE [Concomitant]
     Active Substance: BISOPROLOL FUMARATE
     Dosage: 1.25 MILLIGRAM, QD
     Route: 048
     Dates: start: 20250414
  37. APIXABAN [Concomitant]
     Active Substance: APIXABAN
     Indication: Atrial fibrillation
     Dosage: 5 MILLIGRAM, QD (2.5 MG 1-0-1)
  38. APIXABAN [Concomitant]
     Active Substance: APIXABAN
     Dosage: 5 MILLIGRAM, QD (2.5 MG 1-0-1)
     Route: 048
  39. APIXABAN [Concomitant]
     Active Substance: APIXABAN
     Dosage: 5 MILLIGRAM, QD (2.5 MG 1-0-1)
     Route: 048
  40. APIXABAN [Concomitant]
     Active Substance: APIXABAN
     Dosage: 5 MILLIGRAM, QD (2.5 MG 1-0-1)
  41. FUROSEMIDE [Concomitant]
     Active Substance: FUROSEMIDE
     Indication: Cardiac failure
     Dosage: 40 MILLIGRAM, QD
  42. FUROSEMIDE [Concomitant]
     Active Substance: FUROSEMIDE
     Dosage: 40 MILLIGRAM, QD
     Route: 048
  43. FUROSEMIDE [Concomitant]
     Active Substance: FUROSEMIDE
     Dosage: 40 MILLIGRAM, QD
     Route: 048
  44. FUROSEMIDE [Concomitant]
     Active Substance: FUROSEMIDE
     Dosage: 40 MILLIGRAM, QD
  45. LATANOPROST [Concomitant]
     Active Substance: LATANOPROST
     Indication: Glaucoma
     Dosage: 1 GTT DROPS, QD
  46. LATANOPROST [Concomitant]
     Active Substance: LATANOPROST
     Dosage: 1 GTT DROPS, QD
     Route: 047
  47. LATANOPROST [Concomitant]
     Active Substance: LATANOPROST
     Dosage: 1 GTT DROPS, QD
     Route: 047
  48. LATANOPROST [Concomitant]
     Active Substance: LATANOPROST
     Dosage: 1 GTT DROPS, QD
  49. TIMOLOL MALEATE [Concomitant]
     Active Substance: TIMOLOL MALEATE
     Indication: Glaucoma
     Dosage: 2 GTT DROPS, QD (1-0-1)
  50. TIMOLOL MALEATE [Concomitant]
     Active Substance: TIMOLOL MALEATE
     Dosage: 2 GTT DROPS, QD (1-0-1)
     Route: 047
  51. TIMOLOL MALEATE [Concomitant]
     Active Substance: TIMOLOL MALEATE
     Dosage: 2 GTT DROPS, QD (1-0-1)
     Route: 047
  52. TIMOLOL MALEATE [Concomitant]
     Active Substance: TIMOLOL MALEATE
     Dosage: 2 GTT DROPS, QD (1-0-1)
  53. CHOLECALCIFEROL [Concomitant]
     Active Substance: CHOLECALCIFEROL
     Indication: Vitamin D
     Dosage: 50000 INTERNATIONAL UNIT, MONTHLY
  54. CHOLECALCIFEROL [Concomitant]
     Active Substance: CHOLECALCIFEROL
     Dosage: 50000 INTERNATIONAL UNIT, MONTHLY
     Route: 048
  55. CHOLECALCIFEROL [Concomitant]
     Active Substance: CHOLECALCIFEROL
     Dosage: 50000 INTERNATIONAL UNIT, MONTHLY
     Route: 048
  56. CHOLECALCIFEROL [Concomitant]
     Active Substance: CHOLECALCIFEROL
     Dosage: 50000 INTERNATIONAL UNIT, MONTHLY
  57. POLYETHYLENE GLYCOL 4000 [Concomitant]
     Active Substance: POLYETHYLENE GLYCOL 4000
     Indication: Constipation
  58. POLYETHYLENE GLYCOL 4000 [Concomitant]
     Active Substance: POLYETHYLENE GLYCOL 4000
     Route: 048
  59. POLYETHYLENE GLYCOL 4000 [Concomitant]
     Active Substance: POLYETHYLENE GLYCOL 4000
     Route: 048
  60. POLYETHYLENE GLYCOL 4000 [Concomitant]
     Active Substance: POLYETHYLENE GLYCOL 4000

REACTIONS (2)
  - Hyperbilirubinaemia [Not Recovered/Not Resolved]
  - Condition aggravated [Not Recovered/Not Resolved]

NARRATIVE: CASE EVENT DATE: 20240726
